FAERS Safety Report 7374616-7 (Version None)
Quarter: 2011Q1

REPORT INFORMATION
  Report Type: 
  Country: None (occurrence: None)
  Receive Date: 20110325
  Receipt Date: 20100629
  Transmission Date: 20110831
  Serious: No
  Sender: FDA-Public Use
  Company Number: US-MYLANLABS-2010S1008171

PATIENT
  Age: 55 Year
  Sex: Female
  Weight: 66.23 kg

DRUGS (7)
  1. FENTANYL-100 [Suspect]
     Indication: INTERVERTEBRAL DISC DEGENERATION
     Dosage: Q48HRS
     Route: 062
     Dates: start: 20050101
  2. FENTANYL-100 [Suspect]
     Route: 062
  3. FENTANYL-100 [Suspect]
     Route: 062
  4. FENTANYL-100 [Suspect]
     Route: 062
  5. FENTANYL-100 [Suspect]
     Indication: SPINAL COLUMN STENOSIS
     Dosage: Q48HRS
     Route: 062
     Dates: start: 20050101
  6. FENTANYL-100 [Suspect]
     Indication: PAIN
     Dosage: Q48HRS
     Route: 062
     Dates: start: 20050101
  7. TRAZODONE [Concomitant]

REACTIONS (3)
  - DYSPNOEA [None]
  - DRUG WITHDRAWAL SYNDROME [None]
  - HEADACHE [None]
